FAERS Safety Report 15487419 (Version 1)
Quarter: 2018Q4

REPORT INFORMATION
  Report Type: Spontaneous
  Country: US (occurrence: US)
  Receive Date: 20181003
  Receipt Date: 20181003
  Transmission Date: 20190205
  Serious: No
  Sender: FDA-Public Use
  Company Number: None

PATIENT
  Age: 63 Year
  Sex: Female

DRUGS (1)
  1. AMPYRA [Suspect]
     Active Substance: DALFAMPRIDINE
     Indication: MULTIPLE SCLEROSIS
     Route: 048
     Dates: start: 20171012

REACTIONS (6)
  - Asthenia [None]
  - Furuncle [None]
  - Urinary tract infection [None]
  - Fatigue [None]
  - Purulence [None]
  - Skin infection [None]

NARRATIVE: CASE EVENT DATE: 20180902
